FAERS Safety Report 4614321-0 (Version None)
Quarter: 2005Q1

REPORT INFORMATION
  Report Type: 
  Country: None (occurrence: None)
  Receive Date: 20050308
  Receipt Date: 20041110
  Transmission Date: 20050727
  Serious: Yes (Other)
  Sender: FDA-Public Use
  Company Number: 2004UW23303

PATIENT
  Age: 72 Year
  Sex: Female
  Weight: 72.574 kg

DRUGS (8)
  1. CRESTOR [Suspect]
     Indication: HYPERCHOLESTEROLAEMIA
     Dosage: 10 MG DAILY PO
     Route: 048
  2. LEVAQUIN [Concomitant]
  3. DIOVAN HCT [Concomitant]
  4. DITROPAN [Concomitant]
  5. BEXTRA [Concomitant]
  6. BUSPAR [Concomitant]
  7. NEXIUM [Concomitant]
  8. ZELNORM [Concomitant]

REACTIONS (3)
  - BURNING SENSATION [None]
  - LIP EXFOLIATION [None]
  - SWELLING FACE [None]
